FAERS Safety Report 10039423 (Version 1)
Quarter: 2014Q1

REPORT INFORMATION
  Report Type: Spontaneous
  Country: US (occurrence: None)
  Receive Date: 20140318
  Receipt Date: 20140318
  Transmission Date: 20141002
  Serious: Yes (Hospitalization)
  Sender: FDA-Public Use
  Company Number: 2014CT000014

PATIENT
  Age: 51 Year
  Sex: Female
  Weight: 66.23 kg

DRUGS (2)
  1. KORLYM [Suspect]
     Indication: CUSHING^S SYNDROME
     Route: 048
     Dates: start: 20140101
  2. LIPITOR [Concomitant]

REACTIONS (2)
  - Hypertension [None]
  - Myalgia [None]
